FAERS Safety Report 24593922 (Version 1)
Quarter: 2024Q4

REPORT INFORMATION
  Report Type: Spontaneous
  Country: CA (occurrence: CA)
  Receive Date: 20241108
  Receipt Date: 20241108
  Transmission Date: 20250115
  Serious: Yes (Death)
  Sender: TEVA
  Company Number: CA-TEVA-VS-3260484

PATIENT
  Age: 62 Year
  Sex: Female

DRUGS (2)
  1. METHOTREXATE [Suspect]
     Active Substance: METHOTREXATE
     Indication: Psoriatic arthropathy
     Dosage: DOSE FORM: NOT SPECIFIED
     Route: 065
  2. PANTOPRAZOLE SODIUM [Interacting]
     Active Substance: PANTOPRAZOLE SODIUM
     Indication: Antacid therapy
     Dosage: DOSE FORM: TABLET (ENTERICCOATED)
     Route: 065

REACTIONS (32)
  - Pancytopenia [Fatal]
  - Altered state of consciousness [Fatal]
  - Diarrhoea haemorrhagic [Fatal]
  - Bone marrow failure [Fatal]
  - Hypophagia [Fatal]
  - Fungal infection [Fatal]
  - Ear infection [Fatal]
  - Organ failure [Fatal]
  - Drug monitoring procedure not performed [Fatal]
  - Bacterial colitis [Fatal]
  - Asthenia [Fatal]
  - Pulmonary alveolar haemorrhage [Fatal]
  - Septic shock [Fatal]
  - Febrile neutropenia [Fatal]
  - Pneumonia [Fatal]
  - Pyrexia [Fatal]
  - Chills [Fatal]
  - Acute kidney injury [Fatal]
  - Vomiting [Fatal]
  - Hypovolaemic shock [Fatal]
  - Herpes zoster disseminated [Fatal]
  - Ear pain [Fatal]
  - Diarrhoea [Fatal]
  - Drug interaction [Fatal]
  - Haemoglobin decreased [Fatal]
  - Upper respiratory tract infection [Fatal]
  - Accidental poisoning [Fatal]
  - Influenza [Fatal]
  - Enterocolitis [Fatal]
  - Cough [Fatal]
  - Mouth ulceration [Fatal]
  - Contraindicated product administered [Fatal]
